FAERS Safety Report 4375987-6 (Version None)
Quarter: 2004Q2

REPORT INFORMATION
  Report Type: 
  Country: None (occurrence: None)
  Receive Date: 20040609
  Receipt Date: 20040609
  Transmission Date: 20050107
  Serious: Yes (Other)
  Sender: FDA-Public Use
  Company Number: None

PATIENT
  Age: 33 Year
  Sex: Female
  Weight: 117.9352 kg

DRUGS (2)
  1. SEROQUEL [Suspect]
     Indication: SCHIZOPHRENIA
     Dates: start: 20010210, end: 20021018
  2. PROLIXIN [Suspect]
     Indication: SCHIZOPHRENIA
     Dates: start: 20010210, end: 20021018

REACTIONS (15)
  - ABDOMINAL PAIN LOWER [None]
  - ABNORMAL DREAMS [None]
  - DIARRHOEA [None]
  - DYSPAREUNIA [None]
  - DYSPEPSIA [None]
  - FEELING HOT [None]
  - FLATULENCE [None]
  - HYPERHIDROSIS [None]
  - INSOMNIA [None]
  - LOSS OF CONSCIOUSNESS [None]
  - POLLAKIURIA [None]
  - RHINORRHOEA [None]
  - SNEEZING [None]
  - STRESS INCONTINENCE [None]
  - WEIGHT INCREASED [None]
